FAERS Safety Report 7435117-0 (Version None)
Quarter: 2011Q2

REPORT INFORMATION
  Report Type: 
  Country: None (occurrence: None)
  Receive Date: 20110425
  Receipt Date: 20110412
  Transmission Date: 20111010
  Serious: Yes (Other)
  Sender: FDA-Public Use
  Company Number: PHHY2010JP75150

PATIENT
  Sex: Female

DRUGS (6)
  1. AMN107 [Suspect]
     Dosage: 400 MG, DAILY
     Route: 048
     Dates: start: 20091023, end: 20100514
  2. AMN107 [Suspect]
     Dosage: 600 MG, DAILY
     Route: 048
     Dates: start: 20090715, end: 20090722
  3. AMN107 [Suspect]
     Dosage: 400 MG, DAILY
     Route: 048
     Dates: start: 20100607
  4. AMN107 [Suspect]
     Indication: CHRONIC MYELOID LEUKAEMIA
     Dosage: 400 MG, DAILY
     Route: 048
     Dates: start: 20090708, end: 20090714
  5. HERBESSER [Concomitant]
     Indication: HYPERTENSION
     Dosage: 2 DF, UNK
     Route: 048
  6. AMN107 [Suspect]
     Dosage: 800 MG, DAILY
     Route: 048
     Dates: start: 20090723, end: 20091012

REACTIONS (5)
  - LIPASE INCREASED [None]
  - ANAEMIA [None]
  - WHITE BLOOD CELL COUNT DECREASED [None]
  - HEPATIC FUNCTION ABNORMAL [None]
  - PLATELET COUNT DECREASED [None]
